FAERS Safety Report 7659305-3 (Version None)
Quarter: 2011Q3

REPORT INFORMATION
  Report Type: 
  Country: None (occurrence: None)
  Receive Date: 20110805
  Receipt Date: 20110726
  Transmission Date: 20111222
  Serious: Yes (Death)
  Sender: FDA-Public Use
  Company Number: GB-ROCHE-793312

PATIENT
  Age: 57 Year
  Sex: Female

DRUGS (8)
  1. AVASTIN [Suspect]
     Indication: RECTAL CANCER METASTATIC
     Route: 042
     Dates: start: 20110406, end: 20110427
  2. OXALIPLATIN [Suspect]
     Indication: RECTAL CANCER METASTATIC
     Route: 042
     Dates: start: 20110316, end: 20110427
  3. CAPECITABINE [Suspect]
     Indication: RECTAL CANCER METASTATIC
     Route: 048
     Dates: start: 20110416, end: 20110427
  4. DEXAMETHASONE [Concomitant]
  5. ONDANSERTRON HYDROCHLORIDE [Concomitant]
     Dates: start: 20110510, end: 20110512
  6. OMEPRAZOLE [Concomitant]
     Dates: start: 20110509, end: 20110511
  7. PROCHLORPERAZINE [Concomitant]
     Dates: start: 20110510, end: 20110512
  8. CYCLIZINE [Concomitant]

REACTIONS (2)
  - CEREBROVASCULAR ACCIDENT [None]
  - ORAL CANDIDIASIS [None]
